FAERS Safety Report 8497391-1 (Version None)
Quarter: 2012Q3

REPORT INFORMATION
  Report Type: 
  Country: None (occurrence: None)
  Receive Date: 20120709
  Receipt Date: 20120611
  Transmission Date: 20120928
  Serious: No
  Sender: FDA-Public Use
  Company Number: US-AMGEN-USASP2012036498

PATIENT
  Age: 68 Year
  Sex: Female

DRUGS (4)
  1. ENBREL [Suspect]
     Indication: RHEUMATOID ARTHRITIS
     Dosage: 25 MG, 2 TIMES/WK
     Dates: start: 20110101
  2. ENBREL [Suspect]
     Indication: MYOSITIS
  3. ENBREL [Suspect]
     Indication: MYALGIA
  4. ENBREL [Suspect]
     Indication: ANKYLOSING SPONDYLITIS

REACTIONS (4)
  - CONTUSION [None]
  - RESPIRATORY TRACT INFECTION [None]
  - ASTHENIA [None]
  - SENSATION OF HEAVINESS [None]
